FAERS Safety Report 8446158-9 (Version None)
Quarter: 2012Q2

REPORT INFORMATION
  Report Type: 
  Country: None (occurrence: None)
  Receive Date: 20120323
  Receipt Date: 20110831
  Transmission Date: 20120825
  Serious: Yes (Other)
  Sender: FDA-Public Use
  Company Number: 163-21880-11090272

PATIENT

DRUGS (2)
  1. REVLIMID [Suspect]
     Indication: MULTIPLE MYELOMA
     Dosage: 5 MG, DAILY, FOR 1-14 DAYS, PO
     Route: 047
     Dates: start: 20101101
  2. REVLIMID [Suspect]

REACTIONS (5)
  - FATIGUE [None]
  - THROMBOSIS [None]
  - DIARRHOEA [None]
  - PRURITUS [None]
  - RASH [None]
